FAERS Safety Report 5911612-8 (Version None)
Quarter: 2008Q4

REPORT INFORMATION
  Report Type: 
  Country: None (occurrence: None)
  Receive Date: 20081003
  Receipt Date: 20080917
  Transmission Date: 20090506
  Serious: Yes (Other)
  Sender: FDA-Public Use
  Company Number: PT08-035

PATIENT
  Sex: Male
  Weight: 71.6683 kg

DRUGS (2)
  1. TRAMADOL HCL [Suspect]
     Indication: BACK PAIN
     Dosage: 150MG T.I.D. ORAL
     Route: 048
     Dates: start: 20071101, end: 20080801
  2. TRAMADOL HCL [Suspect]
     Indication: NECK PAIN
     Dosage: 150MG T.I.D. ORAL
     Route: 048
     Dates: start: 20071101, end: 20080801

REACTIONS (5)
  - DEHYDRATION [None]
  - FALL [None]
  - GRAND MAL CONVULSION [None]
  - RESPIRATORY ARREST [None]
  - TACHYCARDIA [None]
